FAERS Safety Report 7900332-6 (Version None)
Quarter: 2011Q4

REPORT INFORMATION
  Report Type: 
  Country: None (occurrence: None)
  Receive Date: 20111104
  Receipt Date: 20111020
  Transmission Date: 20120403
  Serious: Yes (Other)
  Sender: FDA-Public Use
  Company Number: 1000025037

PATIENT
  Age: 81 Year
  Sex: Male

DRUGS (7)
  1. HEMOVAS (PENTOXIFYLLINE) (PENTOXIFYLLINE) [Concomitant]
  2. MASDIL (DILTIAZEM HYDROCHLORIDE) (DILTIAZEM HYDROCHLORIDE) [Concomitant]
  3. UNIBENESTAN (ALFUZOSIN HYDROCHLORIDE) (ALFUZOSIN HYDROCHLORIDE) [Concomitant]
  4. ALDOCUMAR (WARFARIN SODIUM) (WARFARIN SODIUM) [Concomitant]
  5. ROFLUMILAST (ROFLUMILAST) (TABLETS) [Suspect]
     Indication: CHRONIC OBSTRUCTIVE PULMONARY DISEASE
     Dosage: 500 MCG (500 MCG, 1 IN 1 D), ORAL
     Route: 048
     Dates: start: 20110305, end: 20110322
  6. DIGOXINE (DIGOXIN) (DIGOXIN) [Concomitant]
  7. BRONCHODILATORS (BRONCHODILATORS) (BRONCHODILATORS) [Concomitant]

REACTIONS (7)
  - APATHY [None]
  - TREMOR [None]
  - ANHEDONIA [None]
  - ANXIETY [None]
  - NERVOUSNESS [None]
  - GAIT DISTURBANCE [None]
  - SUICIDAL IDEATION [None]
